FAERS Safety Report 9681021 (Version 2)
Quarter: 2013Q4

REPORT INFORMATION
  Report Type: Report from Study
  Country: CA (occurrence: CA)
  Receive Date: 20131111
  Receipt Date: 20131111
  Transmission Date: 20140711
  Serious: Yes (Other)
  Sender: FDA-Public Use
  Company Number: CA-ROCHE-1299767

PATIENT
  Age: 56 Year
  Sex: Female
  Weight: 72.6 kg

DRUGS (9)
  1. RITUXAN [Suspect]
     Indication: RHEUMATOID ARTHRITIS
     Route: 042
     Dates: start: 20130513
  2. DIPHENHYDRAMINE HCL [Concomitant]
     Route: 048
     Dates: start: 20130513
  3. ACETAMINOPHEN [Concomitant]
     Route: 048
     Dates: start: 20130513
  4. METHYLPREDNISOLONE [Concomitant]
     Route: 042
     Dates: start: 20130513
  5. METHOTREXATE [Concomitant]
  6. SULFASALAZINE [Concomitant]
  7. CITALOPRAM [Concomitant]
  8. FOLIC ACID [Concomitant]
  9. CALCITE [Concomitant]

REACTIONS (2)
  - Abasia [Recovering/Resolving]
  - Arthralgia [Not Recovered/Not Resolved]
